FAERS Safety Report 4791780-4 (Version None)
Quarter: 2005Q4

REPORT INFORMATION
  Report Type: 
  Country: None (occurrence: None)
  Receive Date: 20051005
  Receipt Date: 20050926
  Transmission Date: 20060501
  Serious: Yes (Hospitalization, Other)
  Sender: FDA-Public Use
  Company Number: 2005134340

PATIENT
  Sex: Male

DRUGS (1)
  1. LYRICA [Suspect]
     Indication: ILL-DEFINED DISORDER
     Dosage: 150  MG (75 MG, 2 IN 1 D), ORAL
     Route: 048

REACTIONS (2)
  - LOSS OF CONSCIOUSNESS [None]
  - VENTRICULAR ARRHYTHMIA [None]
